FAERS Safety Report 6636806-8 (Version None)
Quarter: 2010Q1

REPORT INFORMATION
  Report Type: 
  Country: None (occurrence: None)
  Receive Date: 20100311
  Receipt Date: 20100226
  Transmission Date: 20100710
  Serious: Yes (Hospitalization)
  Sender: FDA-Public Use
  Company Number: 232067J10USA

PATIENT
  Age: 56 Year
  Sex: Female
  Weight: 70 kg

DRUGS (3)
  1. REBIF [Suspect]
     Indication: MULTIPLE SCLEROSIS
     Dosage: 44 MCG, 3 IN 1 WEEKS, SUBCUTANEOUS
     Route: 058
     Dates: start: 20090819
  2. STEROIDS (CORTICOSTEROID NOS) [Suspect]
     Indication: MULTIPLE SCLEROSIS
     Dates: start: 20100101, end: 20100101
  3. ATENDLOL (ATENOLOL) [Concomitant]

REACTIONS (5)
  - BLOOD CHOLESTEROL INCREASED [None]
  - DYSPNOEA [None]
  - GASTRIC DISORDER [None]
  - PANCREATITIS [None]
  - TREMOR [None]
